FAERS Safety Report 8554895-0 (Version None)
Quarter: 2012Q3

REPORT INFORMATION
  Report Type: 
  Country: None (occurrence: None)
  Receive Date: 20120731
  Receipt Date: 20120720
  Transmission Date: 20120928
  Serious: Yes (Hospitalization)
  Sender: FDA-Public Use
  Company Number: IT-US-EMD SERONO, INC.-7136250

PATIENT
  Sex: Male

DRUGS (2)
  1. REBIF [Suspect]
     Dates: start: 20120521
  2. REBIF [Suspect]
     Indication: MULTIPLE SCLEROSIS
     Dosage: 0.5 ML
     Route: 058
     Dates: start: 20100810, end: 20120512

REACTIONS (1)
  - PNEUMONIA [None]
